FAERS Safety Report 5849890-6 (Version None)
Quarter: 2008Q3

REPORT INFORMATION
  Report Type: 
  Country: None (occurrence: None)
  Receive Date: 20080819
  Receipt Date: 20080812
  Transmission Date: 20090109
  Serious: Yes (Other)
  Sender: FDA-Public Use
  Company Number: US-AVENTIS-200814205US

PATIENT
  Age: 30 Year
  Sex: Female

DRUGS (2)
  1. CLOMIPHENE CITRATE [Suspect]
     Dosage: DOSE: 150 MG ON DASY 5-9 OF HER MENSTRUAL CYCLE
  2. CLOMIPHENE CITRATE [Suspect]
     Dosage: DOSE: 150 MG ON DASY 5-9 OF HER MENSTRUAL CYCLE

REACTIONS (5)
  - ERYTHEMA [None]
  - EYE PAIN [None]
  - IRIDOCYCLITIS [None]
  - PHOTOPHOBIA [None]
  - VISION BLURRED [None]
